FAERS Safety Report 19086140 (Version 1)
Quarter: 2021Q2

REPORT INFORMATION
  Report Type: Spontaneous
  Country: US (occurrence: US)
  Receive Date: 20210402
  Receipt Date: 20210402
  Transmission Date: 20210717
  Serious: Yes (Other)
  Sender: FDA-Public Use
  Company Number: US-ALLERGAN-2019098US

PATIENT
  Sex: Female

DRUGS (4)
  1. OXYBUTYNIN UNK [Suspect]
     Active Substance: OXYBUTYNIN
     Indication: PRODUCT USED FOR UNKNOWN INDICATION
     Dosage: HIGHER DOSE
  2. OXYBUTYNIN UNK [Suspect]
     Active Substance: OXYBUTYNIN
     Dosage: LOWER DOSE
  3. MYRBETRIQ [Suspect]
     Active Substance: MIRABEGRON
     Indication: PRODUCT USED FOR UNKNOWN INDICATION
     Dosage: 50 MG, THRICE WEEKLY
     Route: 048
  4. MYRBETRIQ [Suspect]
     Active Substance: MIRABEGRON
     Dosage: 25 MG, QD
     Route: 048

REACTIONS (5)
  - Sluggishness [Unknown]
  - Abdominal discomfort [Unknown]
  - Urinary retention [Unknown]
  - Cystitis [Unknown]
  - Urinary tract infection [Unknown]
